FAERS Safety Report 23753599 (Version 1)
Quarter: 2024Q2

REPORT INFORMATION
  Report Type: Spontaneous
  Country: US (occurrence: US)
  Receive Date: 20240417
  Receipt Date: 20240417
  Transmission Date: 20240716
  Serious: No
  Sender: FDA-Public Use
  Company Number: US-B.Braun Medical Inc.-2155666

PATIENT
  Age: 61 Year
  Sex: Female

DRUGS (4)
  1. CEFOXITIN AND DEXTROSE [Suspect]
     Active Substance: CEFOXITIN SODIUM
     Indication: Mycobacterium abscessus infection
     Route: 042
  2. AZITHROMYCIN [Suspect]
     Active Substance: AZITHROMYCIN
  3. OMADACYCLINE [Suspect]
     Active Substance: OMADACYCLINE
  4. LINEZOLID [Suspect]
     Active Substance: LINEZOLID

REACTIONS (3)
  - Rash [Recovering/Resolving]
  - Off label use [Recovering/Resolving]
  - Pruritus [Recovering/Resolving]
